FAERS Safety Report 9503842 (Version 1)
Quarter: 2013Q3

REPORT INFORMATION
  Report Type: Spontaneous
  Country: US (occurrence: US)
  Receive Date: 20130906
  Receipt Date: 20130906
  Transmission Date: 20140515
  Serious: Yes (Hospitalization, Other)
  Sender: FDA-Public Use
  Company Number: US-JNJFOC-20130902019

PATIENT
  Age: 55 Year
  Sex: Female
  Weight: 78.47 kg

DRUGS (3)
  1. XARELTO [Suspect]
     Indication: DEEP VEIN THROMBOSIS
     Route: 048
     Dates: start: 20130516, end: 201306
  2. XARELTO [Suspect]
     Indication: DEEP VEIN THROMBOSIS
     Route: 048
     Dates: start: 201306
  3. RADIOTHERAPY [Suspect]
     Indication: OVARIAN CANCER
     Route: 065

REACTIONS (3)
  - Abdominal operation [Recovered/Resolved]
  - Ovarian cancer [Not Recovered/Not Resolved]
  - Nausea [Not Recovered/Not Resolved]
